FAERS Safety Report 9974405 (Version 1)
Quarter: 2014Q1

REPORT INFORMATION
  Report Type: Report from Study
  Country: US (occurrence: US)
  Receive Date: 20140306
  Receipt Date: 20140306
  Transmission Date: 20141002
  Serious: No
  Sender: FDA-Public Use
  Company Number: US-ABBVIE-13P-163-1156250-00

PATIENT
  Sex: Female
  Weight: 81.72 kg

DRUGS (3)
  1. HUMIRA [Suspect]
     Indication: PSORIASIS
     Dates: start: 2011, end: 2011
  2. CLOBEX [Concomitant]
     Indication: PSORIASIS
  3. OMEPRAZOLE [Concomitant]
     Indication: DYSPEPSIA

REACTIONS (1)
  - Drug administered at inappropriate site [Recovered/Resolved]
